FAERS Safety Report 11876192 (Version 2)
Quarter: 2016Q1

REPORT INFORMATION
  Report Type: Spontaneous
  Country: ES (occurrence: ES)
  Receive Date: 20151229
  Receipt Date: 20160218
  Transmission Date: 20160526
  Serious: Yes (Death, Other)
  Sender: FDA-Public Use
  Company Number: ES-VIIV HEALTHCARE LIMITED-ES2015180450

PATIENT
  Age: 40 Year
  Sex: Female

DRUGS (3)
  1. TRIUMEQ [Suspect]
     Active Substance: ABACAVIR SULFATE\DOLUTEGRAVIR SODIUM\LAMIVUDINE
     Indication: HIV INFECTION
     Dosage: 1 DF, QD
     Route: 048
     Dates: start: 201509
  2. KALETRA 100 MG/25 MG COMPRIMIDOS RECUBIERTOS CON PELICULA , 60 COMPRIM [Concomitant]
     Route: 065
     Dates: end: 201509
  3. COMBIVIR 150 MG/300 MG COMPRIMIDOS CON CUBIERTA PELICULAR, 60 COMPRIMI [Concomitant]
     Route: 065
     Dates: end: 201509

REACTIONS (1)
  - Completed suicide [Fatal]

NARRATIVE: CASE EVENT DATE: 201511
